FAERS Safety Report 7581957-7 (Version None)
Quarter: 2011Q2

REPORT INFORMATION
  Report Type: 
  Country: None (occurrence: None)
  Receive Date: 20110630
  Receipt Date: 20110624
  Transmission Date: 20111010
  Serious: Yes (Other)
  Sender: FDA-Public Use
  Company Number: US-BIOGENIDEC-2009BI010743

PATIENT
  Age: 39 Year
  Sex: Female
  Weight: 41 kg

DRUGS (2)
  1. TYSABRI [Suspect]
     Route: 042
     Dates: start: 20070626
  2. TYSABRI [Suspect]
     Indication: MULTIPLE SCLEROSIS
     Route: 042
     Dates: start: 20050118, end: 20050101

REACTIONS (9)
  - GRAND MAL CONVULSION [None]
  - PAIN [None]
  - PARAESTHESIA [None]
  - FALL [None]
  - MULTIPLE SCLEROSIS [None]
  - HYPOAESTHESIA [None]
  - FATIGUE [None]
  - MIGRAINE [None]
  - GAIT DISTURBANCE [None]
